FAERS Safety Report 20389809 (Version 1)
Quarter: 2022Q1

REPORT INFORMATION
  Report Type: Spontaneous
  Country: US (occurrence: None)
  Receive Date: 20220128
  Receipt Date: 20220128
  Transmission Date: 20220423
  Serious: No
  Sender: FDA-Public Use
  Company Number: US-Ultragenyx Pharmaceutical Inc.-US-UGNX-21-00434

PATIENT
  Sex: Male

DRUGS (6)
  1. DOJOLVI [Suspect]
     Active Substance: TRIHEPTANOIN
     Indication: Very long-chain acyl-coenzyme A dehydrogenase deficiency
     Dosage: 11% DAILY CALORIE INTAKE
     Dates: start: 20210120
  2. DOJOLVI [Suspect]
     Active Substance: TRIHEPTANOIN
     Dosage: 21% DAILY CALORIE INTAKE
  3. DOJOLVI [Suspect]
     Active Substance: TRIHEPTANOIN
     Dosage: 11% DAILY CALORIE INTAKE
  4. DOJOLVI [Suspect]
     Active Substance: TRIHEPTANOIN
     Route: 048
     Dates: start: 202109
  5. DOJOLVI [Suspect]
     Active Substance: TRIHEPTANOIN
     Route: 048
  6. IRON [Concomitant]
     Active Substance: IRON
     Indication: Product used for unknown indication

REACTIONS (2)
  - Blood triglycerides increased [Recovered/Resolved]
  - Blood cholesterol increased [Recovered/Resolved]
